FAERS Safety Report 24938413 (Version 2)
Quarter: 2025Q4

REPORT INFORMATION
  Report Type: Spontaneous
  Country: US (occurrence: US)
  Receive Date: 20250206
  Receipt Date: 20251201
  Transmission Date: 20260118
  Serious: No
  Sender: SANOFI AVENTIS
  Company Number: US-SA-2025SA035793

PATIENT
  Age: 11 Year
  Sex: Male
  Weight: 47.73 kg

DRUGS (4)
  1. DUPIXENT [Suspect]
     Active Substance: DUPILUMAB
     Indication: Dermatitis atopic
     Dosage: 200 MG, QOW
     Route: 065
     Dates: start: 202407
  2. CIBINQO [Concomitant]
     Active Substance: ABROCITINIB
     Dosage: 200 MG, QOW
     Route: 065
  3. ZORYVE [Concomitant]
     Active Substance: ROFLUMILAST
  4. SYMBICORT [Concomitant]
     Active Substance: BUDESONIDE\FORMOTEROL FUMARATE DIHYDRATE

REACTIONS (2)
  - Skin irritation [Unknown]
  - Injection site pain [Not Recovered/Not Resolved]
